FAERS Safety Report 4633683-1 (Version None)
Quarter: 2005Q2

REPORT INFORMATION
  Report Type: 
  Country: None (occurrence: None)
  Receive Date: 20050331
  Receipt Date: 20040416
  Transmission Date: 20051028
  Serious: Yes (Hospitalization, Other)
  Sender: FDA-Public Use
  Company Number: 200314112BCC

PATIENT
  Age: 82 Year
  Sex: Female
  Weight: 81.6475 kg

DRUGS (8)
  1. ALEVE [Suspect]
     Indication: ARTHRITIS
     Dosage: 220 MG, QD, ORAL
     Route: 048
  2. ECOTRIN (ACETYLSALICYLIC ACID) [Suspect]
     Indication: PROPHYLAXIS
     Dosage: 325 MG, QD, ORAL;  DURATION: A FEW YEARS
     Route: 048
  3. PROPRANOLOL [Concomitant]
  4. LISINOPRIL [Concomitant]
  5. TRIAMTERENE AND HYDROCHLOROTHIAZIDE [Concomitant]
  6. AUGMENTIN '125' [Concomitant]
  7. MULTI-VITAMIN [Concomitant]
  8. VITAMIN E [Concomitant]

REACTIONS (2)
  - GASTRIC ULCER [None]
  - HAEMATEMESIS [None]
